FAERS Safety Report 11491276 (Version 1)
Quarter: 2015Q3

REPORT INFORMATION
  Report Type: Report from Study
  Country: US (occurrence: US)
  Receive Date: 20150910
  Receipt Date: 20150910
  Transmission Date: 20151125
  Serious: Yes (Hospitalization)
  Sender: FDA-Public Use
  Company Number: US-JNJFOC-20150906603

PATIENT
  Age: 63 Year
  Sex: Female

DRUGS (8)
  1. IMBRUVICA [Suspect]
     Active Substance: IBRUTINIB
     Indication: CHRONIC LYMPHOCYTIC LEUKAEMIA
     Route: 048
     Dates: start: 20140430, end: 201508
  2. ENALAPRIL [Concomitant]
     Active Substance: ENALAPRIL
  3. METFORMIN [Concomitant]
     Active Substance: METFORMIN HYDROCHLORIDE
  4. CINNAMON. [Concomitant]
     Active Substance: CINNAMON
  5. HYDROCHLOROTHIAZIDE. [Concomitant]
     Active Substance: HYDROCHLOROTHIAZIDE
  6. STOOL SOFTENER [Concomitant]
     Active Substance: DOCUSATE CALCIUM
  7. ALLOPURINOL. [Concomitant]
     Active Substance: ALLOPURINOL
  8. CENTRUM SILVER [Concomitant]
     Active Substance: VITAMINS

REACTIONS (2)
  - Infection [Unknown]
  - Skin lesion [Unknown]

NARRATIVE: CASE EVENT DATE: 20150819
